FAERS Safety Report 23678781 (Version 1)
Quarter: 2024Q1

REPORT INFORMATION
  Report Type: Report from Study
  Country: US (occurrence: None)
  Receive Date: 20240327
  Receipt Date: 20240327
  Transmission Date: 20240410
  Serious: Yes (Other)
  Sender: FDA-Public Use
  Company Number: 2024A070471

PATIENT
  Sex: Female
  Weight: 79.4 kg

DRUGS (1)
  1. KOSELUGO [Suspect]
     Active Substance: SELUMETINIB
     Indication: Malignant nervous system neoplasm
     Route: 048

REACTIONS (1)
  - Intervertebral disc protrusion [Recovering/Resolving]
